FAERS Safety Report 8133791-7 (Version None)
Quarter: 2012Q1

REPORT INFORMATION
  Report Type: 
  Country: None (occurrence: None)
  Receive Date: 20120213
  Receipt Date: 20120213
  Transmission Date: 20120608
  Serious: Yes (Life-Threatening, Hospitalization, Disabling)
  Sender: FDA-Public Use
  Company Number: None

PATIENT
  Age: 35 Year
  Sex: Female
  Weight: 49.895 kg

DRUGS (1)
  1. LO/OVRAL-28 [Suspect]
     Indication: CONTRACEPTION
     Dosage: 28 PILL PACK
     Route: 048
     Dates: start: 20101001, end: 20111220

REACTIONS (4)
  - HIGH RISK PREGNANCY [None]
  - MATERNAL EXPOSURE DURING PREGNANCY [None]
  - PRODUCT QUALITY ISSUE [None]
  - PREGNANCY ON ORAL CONTRACEPTIVE [None]
